FAERS Safety Report 21596139 (Version 2)
Quarter: 2022Q4

REPORT INFORMATION
  Report Type: Report from Study
  Country: US (occurrence: US)
  Receive Date: 20221115
  Receipt Date: 20221117
  Transmission Date: 20230112
  Serious: No
  Sender: FDA-Public Use
  Company Number: US-ABBVIE-4159425

PATIENT
  Age: 44 Year
  Sex: Male

DRUGS (2)
  1. HUMIRA [Suspect]
     Active Substance: ADALIMUMAB
     Indication: Psoriasis
     Route: 058
  2. SKYRIZI [Suspect]
     Active Substance: RISANKIZUMAB-RZAA
     Indication: Psoriasis
     Route: 058

REACTIONS (6)
  - Pyrexia [Not Recovered/Not Resolved]
  - Feeling hot [Recovered/Resolved]
  - Headache [Recovered/Resolved]
  - Productive cough [Recovering/Resolving]
  - Hyperhidrosis [Recovered/Resolved]
  - Thinking abnormal [Recovered/Resolved]

NARRATIVE: CASE EVENT DATE: 20221006
